FAERS Safety Report 9704733 (Version 1)
Quarter: 2013Q4

REPORT INFORMATION
  Report Type: Report from Study
  Country: US (occurrence: US)
  Receive Date: 20131122
  Receipt Date: 20131122
  Transmission Date: 20140711
  Serious: Yes (Death)
  Sender: FDA-Public Use
  Company Number: US-ROCHE-1306890

PATIENT
  Sex: Male

DRUGS (6)
  1. AVASTIN [Suspect]
     Indication: CARCINOID SYNDROME
     Dosage: 6 DATES OF SERVICE, AS REQUIRED
     Route: 042
     Dates: start: 20130130
  2. AVASTIN [Suspect]
     Route: 042
     Dates: start: 20130228
  3. AVASTIN [Suspect]
     Route: 042
     Dates: start: 20130325
  4. AVASTIN [Suspect]
     Route: 042
     Dates: start: 20130513
  5. AVASTIN [Suspect]
     Route: 042
     Dates: start: 20130529
  6. AVASTIN [Suspect]
     Route: 042
     Dates: start: 20130626, end: 20130626

REACTIONS (1)
  - Death [Fatal]
